FAERS Safety Report 6609997-2 (Version None)
Quarter: 2010Q1

REPORT INFORMATION
  Report Type: 
  Country: None (occurrence: None)
  Receive Date: 20100224
  Receipt Date: 20100212
  Transmission Date: 20100710
  Serious: Yes (Other)
  Sender: FDA-Public Use
  Company Number: 8037643

PATIENT
  Age: 40 Year
  Sex: Male

DRUGS (2)
  1. PREDNISOLONE [Suspect]
     Indication: SYMPATHETIC OPHTHALMIA
     Dosage: (10 MG QD)
  2. CYCLOSPORINE [Suspect]
     Indication: SYMPATHETIC OPHTHALMIA
     Dosage: (50 MG BID)

REACTIONS (4)
  - CONDITION AGGRAVATED [None]
  - DIARRHOEA INFECTIOUS [None]
  - DRUG INEFFECTIVE [None]
  - SYMPATHETIC OPHTHALMIA [None]
